FAERS Safety Report 5255932-1 (Version None)
Quarter: 2007Q1

REPORT INFORMATION
  Report Type: 
  Country: None (occurrence: None)
  Receive Date: 20061204
  Receipt Date: 20060828
  Transmission Date: 20070707
  Serious: No
  Sender: FDA-Public Use
  Company Number: 2006-BP-10003BP

PATIENT
  Age: 60 Year
  Sex: Male

DRUGS (1)
  1. SPIRIVA [Suspect]
     Indication: BLOOD PRESSURE
     Dosage: 18 MG, IH
     Route: 055

REACTIONS (1)
  - DRUG INEFFECTIVE [None]
